FAERS Safety Report 9427070 (Version 2)
Quarter: 2013Q3

REPORT INFORMATION
  Report Type: Spontaneous
  Country: JP (occurrence: JP)
  Receive Date: 20130730
  Receipt Date: 20130829
  Transmission Date: 20140515
  Serious: Yes (Hospitalization, Other)
  Sender: FDA-Public Use
  Company Number: JP-ELI_LILLY_AND_COMPANY-JP201306000013

PATIENT
  Age: 60 Year
  Sex: Male
  Weight: 78 kg

DRUGS (7)
  1. ALIMTA [Suspect]
     Indication: LUNG ADENOCARCINOMA STAGE III
     Dosage: 500 MG/M2, UNK
     Route: 042
     Dates: start: 20121214, end: 20130215
  2. ALIMTA [Suspect]
     Dosage: 500 MG/M2, UNK
     Route: 042
     Dates: start: 20130327, end: 20130522
  3. AVASTIN [Suspect]
     Indication: LUNG ADENOCARCINOMA STAGE III
     Dosage: 15 MG/KG, UNK
     Route: 042
     Dates: start: 20121214, end: 20130215
  4. AVASTIN [Suspect]
     Dosage: 15 MG/KG, UNK
     Route: 042
     Dates: start: 20130327, end: 20130522
  5. CARBOPLATIN [Concomitant]
     Indication: LUNG ADENOCARCINOMA STAGE III
     Dosage: UNK
     Dates: start: 20121214, end: 20130215
  6. PANVITAN [Concomitant]
     Indication: PROPHYLAXIS
     Dosage: 1 G, UNK
     Route: 048
     Dates: start: 20121126
  7. METHYCOBAL [Concomitant]
     Dosage: 1000 UNK, UNK
     Route: 030
     Dates: start: 20121126

REACTIONS (8)
  - Pain of skin [Recovering/Resolving]
  - Neutropenia [Recovered/Resolved]
  - Hiccups [Recovered/Resolved]
  - Toxic skin eruption [Unknown]
  - Nausea [Recovered/Resolved]
  - Constipation [Recovered/Resolved]
  - Decreased appetite [Recovered/Resolved]
  - Platelet count decreased [Recovered/Resolved]
